FAERS Safety Report 5242794-1 (Version None)
Quarter: 2007Q1

REPORT INFORMATION
  Report Type: 
  Country: None (occurrence: None)
  Receive Date: 20061201
  Receipt Date: 20060804
  Transmission Date: 20070707
  Serious: Yes (Hospitalization)
  Sender: FDA-Public Use
  Company Number: 2006PV013495

PATIENT
  Age: 73 Year
  Sex: Female
  Weight: 108.8633 kg

DRUGS (11)
  1. BYETTA [Suspect]
     Indication: DIABETES MELLITUS NON-INSULIN-DEPENDENT
     Dosage: SEE IMAGE
     Route: 058
     Dates: start: 20060314, end: 20060401
  2. BYETTA [Suspect]
     Indication: DIABETES MELLITUS NON-INSULIN-DEPENDENT
     Dosage: SEE IMAGE
     Route: 058
     Dates: start: 20060401, end: 20060421
  3. BYETTA [Suspect]
     Indication: DIABETES MELLITUS NON-INSULIN-DEPENDENT
     Dosage: SEE IMAGE
     Route: 058
     Dates: start: 20060422
  4. LANTUS [Suspect]
     Dosage: SEE IMAGE
     Route: 058
     Dates: end: 20060421
  5. LANTUS [Suspect]
     Dosage: SEE IMAGE
     Route: 058
     Dates: start: 20060801
  6. ACTOS [Concomitant]
  7. GLUCOTROL XL [Concomitant]
  8. GLUCOPHAGE [Concomitant]
  9. LASIX [Concomitant]
  10. STARLIX [Concomitant]
  11. GLIPIZIDE [Concomitant]

REACTIONS (3)
  - BLOOD GLUCOSE DECREASED [None]
  - BLOOD GLUCOSE INCREASED [None]
  - WEIGHT DECREASED [None]
